FAERS Safety Report 4355139-6 (Version None)
Quarter: 2004Q2

REPORT INFORMATION
  Report Type: 
  Country: None (occurrence: None)
  Receive Date: 20040504
  Receipt Date: 20040420
  Transmission Date: 20050107
  Serious: Yes (Life-Threatening, Hospitalization)
  Sender: FDA-Public Use
  Company Number: 2004208647JP

PATIENT
  Age: 59 Year
  Sex: Male
  Weight: 59 kg

DRUGS (8)
  1. SOLU-MEDROL [Suspect]
     Indication: SHOCK
     Dosage: 250 MG, SINGLE, IV
     Route: 042
     Dates: start: 20040403, end: 20040403
  2. SAXIZON (HYDROCORTISONE SODIUM SUCCINATE) [Suspect]
     Indication: URTICARIA
     Dosage: SEE IMAGE
     Route: 042
     Dates: start: 20040403, end: 20040403
  3. SAXIZON (HYDROCORTISONE SODIUM SUCCINATE) [Suspect]
     Indication: URTICARIA
     Dosage: SEE IMAGE
     Route: 042
     Dates: start: 20040403, end: 20040403
  4. FLUMARIN (FLOMOXEF SODIUM) [Concomitant]
  5. AMINOTRIPA 1 (CARBOHYDRATES NOS) [Concomitant]
  6. VOLTAREN [Concomitant]
  7. RED BLOOD CELLS [Concomitant]
  8. PLASMA [Concomitant]

REACTIONS (1)
  - ANAPHYLACTIC SHOCK [None]
